FAERS Safety Report 8373808-8 (Version None)
Quarter: 2012Q2

REPORT INFORMATION
  Report Type: 
  Country: None (occurrence: None)
  Receive Date: 20120521
  Receipt Date: 20120510
  Transmission Date: 20120825
  Serious: Yes (Other)
  Sender: FDA-Public Use
  Company Number: CA-ASTRAZENECA-2012SE30232

PATIENT
  Age: 77 Year
  Sex: Male

DRUGS (3)
  1. ZOLADEX [Suspect]
     Indication: PROSTATE CANCER
     Route: 058
     Dates: start: 20020209, end: 20050209
  2. ZOLADEX [Suspect]
     Route: 058
     Dates: start: 20120209
  3. ASPIRIN [Concomitant]

REACTIONS (3)
  - ARTHRALGIA [None]
  - LEUKAEMIA [None]
  - JOINT SWELLING [None]
